FAERS Safety Report 8713696 (Version 2)
Quarter: 2012Q4

REPORT INFORMATION
  Report Type: 
  Country: US (occurrence: US)
  Receive Date: 20120808
  Receipt Date: 20120903
  Transmission Date: 20130627
  Serious: Yes (Death, Hospitalization, Other)
  Sender: FDA-Public Use
  Company Number: US-ELI_LILLY_AND_COMPANY-US201207009176

PATIENT
  Sex: Male
  Weight: 68.03 kg

DRUGS (1)
  1. ZYPREXA RELPREVV [Suspect]
     Indication: SCHIZOAFFECTIVE DISORDER
     Dosage: 300 mg, 2/M
     Route: 030
     Dates: start: 20111223

REACTIONS (2)
  - Road traffic accident [Fatal]
  - Craniocerebral injury [Fatal]
